FAERS Safety Report 14860209 (Version 1)
Quarter: 2018Q2

REPORT INFORMATION
  Report Type: Spontaneous
  Country: US (occurrence: US)
  Receive Date: 20180508
  Receipt Date: 20180508
  Transmission Date: 20180711
  Serious: Yes (Hospitalization)
  Sender: FDA-Public Use
  Company Number: US-SA-2018SA130058

PATIENT
  Sex: Female

DRUGS (1)
  1. DUPIXENT [Suspect]
     Active Substance: DUPILUMAB
     Indication: DERMATITIS ATOPIC
     Route: 058
     Dates: start: 20180403

REACTIONS (7)
  - Muscle spasms [Recovering/Resolving]
  - Gait disturbance [Recovering/Resolving]
  - Fatigue [Unknown]
  - Sepsis [Recovering/Resolving]
  - Arthralgia [Recovering/Resolving]
  - Hypersensitivity [Recovering/Resolving]
  - Hypokalaemia [Recovering/Resolving]

NARRATIVE: CASE EVENT DATE: 2018
